FAERS Safety Report 17432847 (Version 2)
Quarter: 2020Q1

REPORT INFORMATION
  Report Type: Spontaneous
  Country: US (occurrence: US)
  Receive Date: 20200219
  Receipt Date: 20200225
  Transmission Date: 20200409
  Serious: Yes (Death, Hospitalization)
  Sender: FDA-Public Use
  Company Number: US-ROCHE-2548255

PATIENT
  Age: 94 Year
  Sex: Male

DRUGS (2)
  1. ERIVEDGE [Suspect]
     Active Substance: VISMODEGIB
     Dosage: ONGOING:YES
     Route: 048
     Dates: start: 201906
  2. ERIVEDGE [Suspect]
     Active Substance: VISMODEGIB
     Indication: PRODUCT USED FOR UNKNOWN INDICATION
     Route: 048
     Dates: start: 20190109

REACTIONS (3)
  - Cystitis [Unknown]
  - Bacterial infection [Fatal]
  - Hypotension [Fatal]

NARRATIVE: CASE EVENT DATE: 20200107
